FAERS Safety Report 10871625 (Version 1)
Quarter: 2015Q1

REPORT INFORMATION
  Report Type: Spontaneous
  Country: GB (occurrence: GB)
  Receive Date: 20150226
  Receipt Date: 20150226
  Transmission Date: 20150721
  Serious: Yes (Hospitalization)
  Sender: FDA-Public Use
  Company Number: GB-BAYER-2015-026919

PATIENT
  Age: 55 Year
  Sex: Female

DRUGS (1)
  1. CIPROFLOXACIN. [Suspect]
     Active Substance: CIPROFLOXACIN
     Indication: ANTIBIOTIC PROPHYLAXIS
     Dosage: 750 MG, UNK
     Route: 048

REACTIONS (5)
  - Foreign body [None]
  - Wrong technique in drug usage process [None]
  - Dysphagia [None]
  - Atelectasis [None]
  - Choking [None]
